FAERS Safety Report 8050222-6 (Version None)
Quarter: 2012Q1

REPORT INFORMATION
  Report Type: 
  Country: None (occurrence: None)
  Receive Date: 20120117
  Receipt Date: 20120110
  Transmission Date: 20120608
  Serious: Yes (Other)
  Sender: FDA-Public Use
  Company Number: PHHY2012PT002059

PATIENT
  Age: 78 Year
  Sex: Female

DRUGS (4)
  1. FLUOROURACIL [Suspect]
     Dosage: UNK UKN, UNK
  2. METHOTREXATE [Suspect]
     Indication: BREAST CANCER
     Dosage: UNK UKN, UNK
  3. CYCLOPHOSPHAMIDE [Suspect]
     Indication: BREAST CANCER
     Dosage: UNK UKN, UNK
  4. FLUOROURACIL [Suspect]
     Indication: BREAST CANCER
     Dosage: UNK UKN, UNK

REACTIONS (12)
  - HYPERPLASIA [None]
  - PAPULE [None]
  - SKIN EXFOLIATION [None]
  - SKIN BURNING SENSATION [None]
  - NEUTROPHIL FUNCTION DISORDER [None]
  - TOXIC SKIN ERUPTION [None]
  - RASH ERYTHEMATOUS [None]
  - SKIN EROSION [None]
  - C-REACTIVE PROTEIN INCREASED [None]
  - EPIDERMAL NECROSIS [None]
  - SKIN OEDEMA [None]
  - RED BLOOD CELL SEDIMENTATION RATE INCREASED [None]
